FAERS Safety Report 20576555 (Version 1)
Quarter: 2022Q1

REPORT INFORMATION
  Report Type: Spontaneous
  Country: US (occurrence: None)
  Receive Date: 20220309
  Receipt Date: 20220309
  Transmission Date: 20220424
  Serious: No
  Sender: FDA-Public Use
  Company Number: None

PATIENT
  Age: 56 Year
  Sex: Female

DRUGS (4)
  1. CAPECITABINE [Suspect]
     Active Substance: CAPECITABINE
     Indication: Colon cancer stage III
     Dosage: OTHER QUANTITY : 2000MG/1500MG;?FREQUENCY : TWICE A DAY;?
     Route: 048
     Dates: start: 202203
  2. OXALIPLATIN [Concomitant]
     Active Substance: OXALIPLATIN
  3. LEVOTHYROXINE [Concomitant]
     Active Substance: LEVOTHYROXINE
  4. LITHOBID ER [Concomitant]

REACTIONS (7)
  - Pain in jaw [None]
  - Swelling face [None]
  - Mastication disorder [None]
  - Glossodynia [None]
  - Dysphagia [None]
  - Temperature intolerance [None]
  - Neck pain [None]

NARRATIVE: CASE EVENT DATE: 20220308
